FAERS Safety Report 7451931-X (Version None)
Quarter: 2011Q2

REPORT INFORMATION
  Report Type: 
  Country: None (occurrence: None)
  Receive Date: 20110425
  Receipt Date: 20110408
  Transmission Date: 20111010
  Serious: Yes (Death, Hospitalization)
  Sender: FDA-Public Use
  Company Number: 8046611

PATIENT
  Sex: Female
  Weight: 46.3 kg

DRUGS (10)
  1. POTASSIUM [Concomitant]
  2. PROTONIX [Concomitant]
  3. XANAX [Concomitant]
  4. ACETAMINOPHEN [Concomitant]
  5. FLAGYL [Concomitant]
  6. PAXIL [Concomitant]
  7. PREDNISONE [Concomitant]
  8. OXYCODONE HCL [Concomitant]
  9. METHOTREXATE [Concomitant]
  10. CERTOLIZUMAB PEGOL [Suspect]
     Indication: CROHN'S DISEASE
     Dosage: (200 MG 1X/2 WEEKS, - NR OF DOSES :3 SUBCUTANEOUS)
     Route: 058
     Dates: start: 20090303, end: 20090518

REACTIONS (18)
  - SHOCK [None]
  - RENAL FAILURE [None]
  - FISTULA DISCHARGE [None]
  - SUBCUTANEOUS EMPHYSEMA [None]
  - CARDIO-RESPIRATORY ARREST [None]
  - SEPSIS [None]
  - WOUND DEHISCENCE [None]
  - CONVULSION [None]
  - RESPIRATORY FAILURE [None]
  - DIALYSIS [None]
  - ASCITES [None]
  - LARGE INTESTINE PERFORATION [None]
  - GENERALISED OEDEMA [None]
  - ATELECTASIS [None]
  - LUNG INFILTRATION [None]
  - SPLENIC INFARCTION [None]
  - ADHESION [None]
  - PLEURAL EFFUSION [None]
